FAERS Safety Report 14126667 (Version 3)
Quarter: 2018Q1

REPORT INFORMATION
  Report Type: Report from Study
  Country: US (occurrence: CA)
  Receive Date: 20171025
  Receipt Date: 20180202
  Transmission Date: 20180508
  Serious: Yes (Other)
  Sender: FDA-Public Use
  Company Number: US-SUNOVION-2017SUN004623

PATIENT
  Age: 56 Year
  Sex: Female

DRUGS (6)
  1. GLYCOPYRROLATE. [Suspect]
     Active Substance: GLYCOPYRROLATE
     Indication: ASTHMA
     Dosage: 2 DF, QD  (50UG)
     Route: 055
     Dates: start: 201611
  2. MONTELUKAST [Concomitant]
     Active Substance: MONTELUKAST SODIUM
     Dosage: 10 MG, UNK
     Route: 065
     Dates: start: 201405
  3. ZENHALE [Concomitant]
     Active Substance: FORMOTEROL FUMARATE\MOMETASONE FUROATE
     Dosage: 5 ?G, UNK
     Dates: start: 201611
  4. XOLAIR [Suspect]
     Active Substance: OMALIZUMAB
     Indication: ASTHMA
     Dosage: 225 MG, BIW
     Route: 058
     Dates: start: 20171013
  5. VENTOLIN [Concomitant]
     Active Substance: ALBUTEROL SULFATE
     Dosage: 100 ?G, UNK
     Dates: start: 1990
  6. XOLAIR [Suspect]
     Active Substance: OMALIZUMAB
     Dosage: UNK
     Route: 058
     Dates: start: 20171222

REACTIONS (16)
  - Lung infection [Recovering/Resolving]
  - Pharyngeal oedema [Unknown]
  - Anxiety [Unknown]
  - Sinusitis [Recovering/Resolving]
  - Blood pressure increased [Recovering/Resolving]
  - Pyrexia [Unknown]
  - Nasal congestion [Unknown]
  - Hypersensitivity [Unknown]
  - Product use in unapproved indication [Unknown]
  - Nasal inflammation [Unknown]
  - Pulmonary function test decreased [Unknown]
  - Quality of life decreased [Unknown]
  - Oropharyngeal pain [Unknown]
  - Asthma [Unknown]
  - Cough [Unknown]
  - Nasopharyngitis [Unknown]

NARRATIVE: CASE EVENT DATE: 201611
